FAERS Safety Report 6311706-1 (Version None)
Quarter: 2009Q3

REPORT INFORMATION
  Report Type: 
  Country: None (occurrence: None)
  Receive Date: 20090813
  Receipt Date: 20090813
  Transmission Date: 20100115
  Serious: Yes (Life-Threatening, Other)
  Sender: FDA-Public Use
  Company Number: None

PATIENT
  Age: 41 Year
  Sex: Female
  Weight: 58.9676 kg

DRUGS (2)
  1. LACTULOSE [Suspect]
     Indication: SEPTIC SHOCK
     Dosage: 3 TIMES A DAY, EVERY DAY I USE NEW SUPPLIER BAY CO. - LOT'S BETTER
  2. LACTULOSE [Suspect]

REACTIONS (9)
  - BODY TEMPERATURE INCREASED [None]
  - CONSTIPATION [None]
  - FLUID RETENTION [None]
  - HEADACHE [None]
  - LYMPHADENOPATHY [None]
  - PAIN [None]
  - SHOCK [None]
  - STRESS [None]
  - WEIGHT INCREASED [None]
